FAERS Safety Report 5043114-8 (Version None)
Quarter: 2006Q2

REPORT INFORMATION
  Report Type: 
  Country: None (occurrence: None)
  Receive Date: 20060627
  Receipt Date: 20060614
  Transmission Date: 20061013
  Serious: Yes (Other)
  Sender: FDA-Public Use
  Company Number: 2006075708

PATIENT
  Age: 67 Year
  Sex: Male

DRUGS (1)
  1. ZOXAN LP (DOXAZOSIN) [Suspect]
     Indication: BENIGN PROSTATIC HYPERPLASIA
     Dosage: 4 MG
     Dates: start: 20060612

REACTIONS (2)
  - ELECTROENCEPHALOGRAM ABNORMAL [None]
  - EPILEPSY [None]
